FAERS Safety Report 23369004 (Version 1)
Quarter: 2024Q1

REPORT INFORMATION
  Report Type: Spontaneous
  Country: US (occurrence: US)
  Receive Date: 20240105
  Receipt Date: 20240105
  Transmission Date: 20240410
  Serious: Yes (Hospitalization)
  Sender: FDA-Public Use
  Company Number: US-TEVA-VS-3139577

PATIENT
  Age: 16 Year

DRUGS (2)
  1. FLUOXETINE [Suspect]
     Active Substance: FLUOXETINE HYDROCHLORIDE
     Indication: Intentional overdose
     Dosage: 19.5MG/KG
     Route: 048
  2. TRAZODONE [Concomitant]
     Active Substance: TRAZODONE HYDROCHLORIDE
     Indication: Product used for unknown indication
     Route: 065

REACTIONS (17)
  - Blood pressure increased [Unknown]
  - Toxicity to various agents [Unknown]
  - Seizure [Recovered/Resolved]
  - Tachypnoea [Unknown]
  - Nausea [Unknown]
  - Akathisia [Unknown]
  - Hyperreflexia [Unknown]
  - Clonus [Recovered/Resolved]
  - Tachycardia [Unknown]
  - Mydriasis [Unknown]
  - Paraesthesia [Unknown]
  - Hypertonia [Recovered/Resolved]
  - Tremor [Unknown]
  - Intentional overdose [Unknown]
  - Dizziness [Unknown]
  - Vomiting [Unknown]
  - Electrocardiogram QT prolonged [Recovered/Resolved]
